FAERS Safety Report 9788441 (Version 1)
Quarter: 2013Q4

REPORT INFORMATION
  Report Type: Spontaneous
  Country: CL (occurrence: CL)
  Receive Date: 20131230
  Receipt Date: 20131230
  Transmission Date: 20140711
  Serious: Yes (Other)
  Sender: FDA-Public Use
  Company Number: CL-PFIZER INC-2013368742

PATIENT
  Age: 85 Year
  Sex: Female

DRUGS (6)
  1. XALATAN [Suspect]
     Indication: GLAUCOMA
     Dosage: 1 DROP A DAY
     Route: 047
     Dates: start: 2003
  2. PRADAXA [Concomitant]
  3. DILATREND [Concomitant]
  4. HYDROCHLOROTHIAZIDE/TRIAMTERENE [Concomitant]
  5. AMIODARONE [Concomitant]
  6. ESOMEPRAZOLE [Concomitant]

REACTIONS (2)
  - Lymphoma [Not Recovered/Not Resolved]
  - Arrhythmia [Not Recovered/Not Resolved]
